FAERS Safety Report 19029529 (Version 1)
Quarter: 2021Q1

REPORT INFORMATION
  Report Type: Spontaneous
  Country: JP (occurrence: JP)
  Receive Date: 20210318
  Receipt Date: 20210318
  Transmission Date: 20210420
  Serious: Yes (Hospitalization, Other)
  Sender: FDA-Public Use
  Company Number: JP-BRISTOL-MYERS SQUIBB COMPANY-BMS-2021-024367

PATIENT
  Age: 94 Year
  Sex: Female

DRUGS (1)
  1. ORENCIA [Suspect]
     Active Substance: ABATACEPT
     Indication: PRODUCT USED FOR UNKNOWN INDICATION
     Dosage: UNK QWK
     Route: 058

REACTIONS (3)
  - Seizure [Unknown]
  - COVID-19 [Unknown]
  - Rheumatic disorder [Unknown]

NARRATIVE: CASE EVENT DATE: 20201120
